FAERS Safety Report 15769221 (Version 4)
Quarter: 2019Q2

REPORT INFORMATION
  Report Type: Report from Study
  Country: US (occurrence: US)
  Receive Date: 20181228
  Receipt Date: 20190508
  Transmission Date: 20190711
  Serious: No
  Sender: FDA-Public Use
  Company Number: US-009507513-1812USA010770

PATIENT
  Sex: Male

DRUGS (2)
  1. ASMANEX HFA [Suspect]
     Active Substance: MOMETASONE FUROATE
     Dosage: STRENGTH: ALSO REPORTED AS 120 DOSE, UNK
     Route: 055
  2. ASMANEX HFA [Suspect]
     Active Substance: MOMETASONE FUROATE
     Dosage: STRENGTH: ALSO REPORTED AS 120 DOSE, UNK
     Route: 055

REACTIONS (3)
  - Product use issue [Unknown]
  - Product quality issue [Unknown]
  - Incorrect dose administered [Unknown]
